FAERS Safety Report 7829357-6 (Version None)
Quarter: 2011Q4

REPORT INFORMATION
  Report Type: 
  Country: None (occurrence: None)
  Receive Date: 20111020
  Receipt Date: 20111011
  Transmission Date: 20120403
  Serious: Yes (Other)
  Sender: FDA-Public Use
  Company Number: US-GILEAD-2011-0039309

PATIENT

DRUGS (7)
  1. VITAMIN B COMPLEX CAP [Concomitant]
     Dates: start: 20110110, end: 20110115
  2. MEDROXYPROGESTERONE [Concomitant]
     Dates: start: 20090330, end: 20110207
  3. FERROUS FUMERATE [Concomitant]
     Dates: start: 20101203
  4. TENOFOVIR DISOPROXIL FUMARATE [Suspect]
     Route: 048
     Dates: start: 20090629, end: 20110207
  5. FOLIC ACID [Concomitant]
     Dates: start: 20101203
  6. IBUPROFEN [Concomitant]
     Dates: start: 20110110, end: 20110112
  7. ACETAMINOPHEN [Concomitant]
     Dates: start: 20110207, end: 20110210

REACTIONS (1)
  - ABORTION SPONTANEOUS [None]
